FAERS Safety Report 21336712 (Version 1)
Quarter: 2022Q3

REPORT INFORMATION
  Report Type: Spontaneous
  Country: US (occurrence: US)
  Receive Date: 20220915
  Receipt Date: 20220915
  Transmission Date: 20221027
  Serious: Yes (Death)
  Sender: FDA-Public Use
  Company Number: US-AMGEN-USASP2022158035

PATIENT

DRUGS (2)
  1. BEVACIZUMAB [Suspect]
     Active Substance: BEVACIZUMAB
     Indication: Acute myeloid leukaemia
     Route: 065
  2. SORAFENIB [Concomitant]
     Active Substance: SORAFENIB
     Indication: Acute myeloid leukaemia

REACTIONS (2)
  - Death [Fatal]
  - Off label use [Unknown]
